FAERS Safety Report 9562555 (Version 1)
Quarter: 2013Q3

REPORT INFORMATION
  Report Type: Spontaneous
  Country: US (occurrence: US)
  Receive Date: 20130927
  Receipt Date: 20130927
  Transmission Date: 20140515
  Serious: Yes (Death)
  Sender: FDA-Public Use
  Company Number: US-INCYTE CORPORATION-2013IN002240

PATIENT
  Age: 74 Year
  Sex: Male

DRUGS (10)
  1. JAKAFI [Suspect]
     Indication: MYELOFIBROSIS
     Dosage: 10 MG, QD
     Route: 048
     Dates: start: 201306
  2. FUROSEMIDE [Concomitant]
     Dosage: 20 MG, UNK
  3. ATENOLOL [Concomitant]
     Dosage: 25 MG, UNK
  4. PYRIDOSTIGMINE ER [Concomitant]
     Dosage: 60 MG, UNK
  5. ZOLPIDEM TARTRATE [Concomitant]
     Dosage: 6.25 MG, UNK
  6. ALLOPURINOL [Concomitant]
     Dosage: 300 MG, UNK
  7. PRAMIPEXOLE [Concomitant]
     Dosage: 0.125 MG, UNK
  8. ACIPHEX EC [Concomitant]
     Dosage: 20 MG, UNK
  9. VITAMIN D [Concomitant]
     Dosage: 1000 UT, UNK
  10. VITAMIN C [Concomitant]
     Dosage: 1000 MG, UNK

REACTIONS (1)
  - Death [Fatal]
